FAERS Safety Report 4841470-4 (Version None)
Quarter: 2005Q4

REPORT INFORMATION
  Report Type: 
  Country: None (occurrence: None)
  Receive Date: 20051130
  Receipt Date: 20050802
  Transmission Date: 20060501
  Serious: No
  Sender: FDA-Public Use
  Company Number: US-GLAXOSMITHKLINE-A0568619A

PATIENT
  Age: 31 Year
  Sex: Female

DRUGS (6)
  1. WELLBUTRIN XL [Suspect]
     Indication: DEPRESSION
     Dosage: 300MG PER DAY
     Route: 048
     Dates: start: 20050101
  2. MIDRIN [Concomitant]
  3. VITAMIN B-12 [Concomitant]
  4. MULTI-VITAMIN [Concomitant]
  5. CALCIUM SUPPLEMENT [Concomitant]
  6. WELLBUTRIN SR [Concomitant]

REACTIONS (3)
  - DIZZINESS [None]
  - HEADACHE [None]
  - HYPOTENSION [None]
